FAERS Safety Report 17417152 (Version 2)
Quarter: 2020Q1

REPORT INFORMATION
  Report Type: Spontaneous
  Country: FR (occurrence: FR)
  Receive Date: 20200214
  Receipt Date: 20200227
  Transmission Date: 20200409
  Serious: Yes (Life-Threatening)
  Sender: FDA-Public Use
  Company Number: FR-009507513-2002FRA003733

PATIENT
  Age: 6 Year
  Sex: Male
  Weight: 20.5 kg

DRUGS (3)
  1. EMERADE [Suspect]
     Active Substance: EPINEPHRINE BITARTRATE
     Indication: FOOD ALLERGY
     Dosage: QD, SOLUTION FOR INJECTION IN PRE-FILLED PEN
     Route: 030
     Dates: start: 20190821, end: 20190821
  2. SOLUPRED (PREDNISOLONE SODIUM METAZOATE) [Suspect]
     Active Substance: PREDNISOLONE SODIUM METAZOATE
     Indication: FOOD ALLERGY
     Dosage: ADMINISTERED ONLY ONCE, BEFORE THE FIRST INJECTION ATTEMPT OF SUSPECT PRODUCT
     Route: 065
     Dates: start: 20190821
  3. AERIUS (DESLORATADINE) [Suspect]
     Active Substance: DESLORATADINE
     Indication: FOOD ALLERGY
     Dosage: ADMINISTERED ONLY ONCE, BEFORE THE FIRST INJECTION ATTEMPT OF SUSPECT PRODUCT
     Route: 065
     Dates: start: 20190821

REACTIONS (2)
  - Rebound effect [Unknown]
  - Device malfunction [Unknown]

NARRATIVE: CASE EVENT DATE: 20190821
